FAERS Safety Report 9424341 (Version 1)
Quarter: 2013Q3

REPORT INFORMATION
  Report Type: Spontaneous
  Country: US (occurrence: US)
  Receive Date: 20130729
  Receipt Date: 20130729
  Transmission Date: 20140515
  Serious: Yes (Other)
  Sender: FDA-Public Use
  Company Number: US-MYLANLABS-2013S1015819

PATIENT
  Age: 59 Year
  Sex: Male

DRUGS (6)
  1. OMEPRAZOLE [Suspect]
     Dosage: 20 MG DAILY
     Route: 065
     Dates: start: 201009
  2. ATORVASTATIN [Interacting]
     Indication: ACUTE MYOCARDIAL INFARCTION
     Dosage: 20MG DAILY
     Route: 065
     Dates: start: 200604
  3. GEMFIBROZIL [Interacting]
     Indication: ACUTE MYOCARDIAL INFARCTION
     Route: 065
     Dates: start: 2006
  4. AMLODIPINE [Concomitant]
     Route: 065
  5. ASPIRIN [Concomitant]
     Route: 065
  6. METOPROLOL [Concomitant]
     Route: 065

REACTIONS (2)
  - Polymyositis [Recovered/Resolved]
  - Drug interaction [Recovered/Resolved]
